FAERS Safety Report 25191310 (Version 3)
Quarter: 2025Q2

REPORT INFORMATION
  Report Type: Report from Study
  Country: US (occurrence: US)
  Receive Date: 20250411
  Receipt Date: 20250522
  Transmission Date: 20250716
  Serious: Yes (Hospitalization, Other)
  Sender: AIMMUNE
  Company Number: US-ZENPEP LLC-2025AIMT00350

PATIENT

DRUGS (2)
  1. ZENPEP [Suspect]
     Active Substance: PANCRELIPASE AMYLASE\PANCRELIPASE LIPASE\PANCRELIPASE PROTEASE
     Indication: Pancreatic failure
     Route: 048
     Dates: start: 2023
  2. ZENPEP [Suspect]
     Active Substance: PANCRELIPASE AMYLASE\PANCRELIPASE LIPASE\PANCRELIPASE PROTEASE
     Route: 048

REACTIONS (12)
  - Pancreatitis acute [Not Recovered/Not Resolved]
  - Flatulence [Recovered/Resolved]
  - Back pain [Recovered/Resolved]
  - Pain [Unknown]
  - Colostomy [Unknown]
  - Gastrointestinal stoma complication [Unknown]
  - Abdominal discomfort [Unknown]
  - Sleep disorder [Unknown]
  - Gastric aspiration procedure [Recovered/Resolved]
  - Product dose omission issue [Unknown]
  - Vessel puncture site pain [Unknown]
  - White blood cell count decreased [Unknown]
